FAERS Safety Report 4944147-X (Version None)
Quarter: 2006Q1

REPORT INFORMATION
  Report Type: 
  Country: None (occurrence: None)
  Receive Date: 20060310
  Receipt Date: 20060228
  Transmission Date: 20060701
  Serious: Yes (Hospitalization)
  Sender: FDA-Public Use
  Company Number: HQWYE580131JAN06

PATIENT
  Age: 76 Year
  Sex: Male
  Weight: 76 kg

DRUGS (14)
  1. MYLOTARG [Suspect]
     Indication: ACUTE MYELOID LEUKAEMIA
     Dosage: 6 MG 1X PER 1 DAY, INTRAVENOUS
     Route: 042
     Dates: start: 20051128, end: 20051128
  2. MYLOTARG [Suspect]
     Indication: MYELODYSPLASTIC SYNDROME
     Dosage: 6 MG 1X PER 1 DAY, INTRAVENOUS
     Route: 042
     Dates: start: 20051128, end: 20051128
  3. TRISENOX [Suspect]
     Indication: ACUTE MYELOID LEUKAEMIA
     Dosage: 20 MG 2X PER 1 WK, INTRAVENOUS
     Route: 042
     Dates: start: 20051121, end: 20060201
  4. TRISENOX [Suspect]
     Indication: MYELODYSPLASTIC SYNDROME
     Dosage: 20 MG 2X PER 1 WK, INTRAVENOUS
     Route: 042
     Dates: start: 20051121, end: 20060201
  5. KEKTOCONAZOLE (KETOCONAZOLE) [Concomitant]
  6. ACYCLOVIR [Concomitant]
  7. ATENOLOL [Concomitant]
  8. SYNTHROID [Concomitant]
  9. MULTIVITAMINS, PLAIN (MULTIVITAMINS, PLAIN) [Concomitant]
  10. PRILOSEC [Concomitant]
  11. PROSCAR [Concomitant]
  12. FLOMAX (MORNIFLUMATE) [Concomitant]
  13. LOTREL [Concomitant]
  14. DIFLUCAN [Concomitant]

REACTIONS (23)
  - BLOOD BICARBONATE DECREASED [None]
  - BLOOD UREA INCREASED [None]
  - BODY TEMPERATURE DECREASED [None]
  - BRONCHOALVEOLAR LAVAGE ABNORMAL [None]
  - CRYPTOGENIC ORGANIZING PNEUMONIA [None]
  - DYSPNOEA [None]
  - FUNGAL INFECTION [None]
  - GRANULOMA [None]
  - HAEMATOCRIT DECREASED [None]
  - HAEMOGLOBIN DECREASED [None]
  - HEPATIC CYST [None]
  - HYPOTENSION [None]
  - LABORATORY TEST ABNORMAL [None]
  - LYMPHOCYTE PERCENTAGE INCREASED [None]
  - NEOPLASM [None]
  - NEUTROPENIA [None]
  - PCO2 DECREASED [None]
  - PERICARDIAL EFFUSION [None]
  - RESPIRATORY RATE INCREASED [None]
  - SEPSIS [None]
  - SEPTIC EMBOLUS [None]
  - SPLENOMEGALY [None]
  - TACHYCARDIA [None]
